FAERS Safety Report 12345538 (Version 1)
Quarter: 2016Q2

REPORT INFORMATION
  Report Type: Report from Study
  Country: CZ (occurrence: CZ)
  Receive Date: 20160509
  Receipt Date: 20160509
  Transmission Date: 20160815
  Serious: Yes (Death, Other)
  Sender: FDA-Public Use
  Company Number: CZ-ROCHE-1128346

PATIENT

DRUGS (3)
  1. RITUXIMAB [Suspect]
     Active Substance: RITUXIMAB
     Dosage: ON DAY 1
     Route: 042
  2. DEXAMETHASONE. [Suspect]
     Active Substance: DEXAMETHASONE
     Indication: CHRONIC LYMPHOCYTIC LEUKAEMIA
     Route: 048
  3. RITUXIMAB [Suspect]
     Active Substance: RITUXIMAB
     Indication: CHRONIC LYMPHOCYTIC LEUKAEMIA
     Dosage: EVERY 4 WEEKS IN GROUP 1 AND EVERY 3 WEEKS IN GROUP 2
     Route: 042

REACTIONS (13)
  - Pyrexia [Unknown]
  - Urosepsis [Unknown]
  - Thrombocytopenia [Unknown]
  - Febrile neutropenia [Unknown]
  - Death [Fatal]
  - Hyperglycaemia [Unknown]
  - Neutropenia [Unknown]
  - Enteritis [Unknown]
  - Sinusitis [Unknown]
  - Infection [Fatal]
  - Pneumonia [Unknown]
  - Otitis media [Unknown]
  - Diabetes mellitus [Unknown]
